FAERS Safety Report 6349003-0 (Version None)
Quarter: 2009Q3

REPORT INFORMATION
  Report Type: 
  Country: None (occurrence: None)
  Receive Date: 20090911
  Receipt Date: 20090217
  Transmission Date: 20100115
  Serious: Yes (Other)
  Sender: FDA-Public Use
  Company Number: US-BAYER-200912811NA

PATIENT
  Age: 39 Year
  Sex: Female
  Weight: 68 kg

DRUGS (1)
  1. MIRENA [Suspect]
     Indication: CONTRACEPTION
     Route: 015
     Dates: start: 20081218, end: 20090129

REACTIONS (4)
  - IUCD COMPLICATION [None]
  - IUD MIGRATION [None]
  - OVARIAN CYST [None]
  - PELVIC PAIN [None]
